FAERS Safety Report 6706910-4 (Version None)
Quarter: 2010Q2

REPORT INFORMATION
  Report Type: 
  Country: None (occurrence: None)
  Receive Date: 20100430
  Receipt Date: 20100430
  Transmission Date: 20101027
  Serious: Yes (Hospitalization)
  Sender: FDA-Public Use
  Company Number: None

PATIENT
  Age: 47 Year
  Sex: Female
  Weight: 129 kg

DRUGS (1)
  1. VANCOMYCIN [Suspect]
     Indication: LOCALISED INFECTION
     Dosage: 1500MG Q 12 HOURS IV
     Route: 042
     Dates: start: 20100326, end: 20100405

REACTIONS (2)
  - DRUG RASH WITH EOSINOPHILIA AND SYSTEMIC SYMPTOMS [None]
  - NO THERAPEUTIC RESPONSE [None]
